FAERS Safety Report 9870774 (Version 7)
Quarter: 2016Q1

REPORT INFORMATION
  Report Type: Spontaneous
  Country: US (occurrence: US)
  Receive Date: 20140205
  Receipt Date: 20160309
  Transmission Date: 20160526
  Serious: Yes (Hospitalization)
  Sender: FDA-Public Use
  Company Number: US-PFIZER INC-2014032737

PATIENT
  Age: 68 Year
  Sex: Female
  Weight: 66.21 kg

DRUGS (16)
  1. D-3 [Concomitant]
     Active Substance: CHOLECALCIFEROL
     Dosage: 1 TABLET WITH FOOD ONCE A DAY
  2. LYRICA [Suspect]
     Active Substance: PREGABALIN
     Indication: FIBROMYALGIA
     Dosage: 100 MG, 3X/DAY
     Route: 048
  3. LYRICA [Suspect]
     Active Substance: PREGABALIN
     Dosage: 20 MG, 3X/DAY
     Route: 048
     Dates: start: 2011
  4. CELEBREX [Suspect]
     Active Substance: CELECOXIB
     Indication: OSTEOARTHRITIS
     Dosage: 100 MG, 2X/DAY
     Route: 048
     Dates: start: 2011
  5. REQUIP [Concomitant]
     Active Substance: ROPINIROLE HYDROCHLORIDE
     Dosage: 0.25 MG, 1 TO 3 HOURS BEFORE BEDTIME 1X/DAY
  6. SYNTHROID [Concomitant]
     Active Substance: LEVOTHYROXINE SODIUM
     Dosage: 100 ?G, 1X/DAY (ON AN EMPTY STOMACH IN THE MORNING ONCE A DAY)
  7. RAMIPRIL. [Concomitant]
     Active Substance: RAMIPRIL
     Dosage: 5 MG, 2X/DAY
  8. ALTACE [Concomitant]
     Active Substance: RAMIPRIL
     Indication: HYPERTENSION
     Dosage: 5 MG, UNK
  9. CYANOCOBALAMIN. [Concomitant]
     Active Substance: CYANOCOBALAMIN
     Dosage: 1000 MCG/ML SOLUTION, 1 ML
  10. OSCAL [Concomitant]
     Active Substance: CALCIUM CARBONATE
     Dosage: 500/200, 1 TABLET WITH FOOD ONCE A DAY
  11. FEXOFENADINE HCL [Concomitant]
     Active Substance: FEXOFENADINE HYDROCHLORIDE
     Dosage: 180 MG, 1 TABLET 2X/DAY
  12. LYRICA [Suspect]
     Active Substance: PREGABALIN
     Indication: OSTEOARTHRITIS
     Dosage: 50 MG, 3X/DAY
     Route: 048
  13. SUPER B [Concomitant]
     Dosage: 2 DF, DAILY
     Route: 048
  14. CELEBREX [Suspect]
     Active Substance: CELECOXIB
     Indication: ARTHRITIS
     Dosage: 200 MG, 2X/DAY
     Route: 048
  15. ASA [Concomitant]
     Active Substance: ASPIRIN
     Dosage: 1 DF, UNK
  16. TEMAZEPAM. [Concomitant]
     Active Substance: TEMAZEPAM
     Dosage: 15 MG CAPSULE AT BEDTIME AS NEEDED ONCE A DAY

REACTIONS (3)
  - Drug dispensing error [Unknown]
  - Pain [Not Recovered/Not Resolved]
  - Discomfort [Not Recovered/Not Resolved]
